FAERS Safety Report 7048044 (Version 2)
Quarter: 2019Q1

REPORT INFORMATION
  Report Type: Spontaneous
  Country: GB (occurrence: GB)
  Receive Date: 20090713
  Receipt Date: 20190306
  Transmission Date: 20190418
  Serious: Yes (Other)
  Sender: FDA-Public Use
  Company Number: GB-PFIZER INC-2009233896

PATIENT
  Age: 44 Year
  Sex: Male
  Weight: 88 kg

DRUGS (1)
  1. CHAMPIX [Suspect]
     Active Substance: VARENICLINE TARTRATE
     Indication: SMOKING CESSATION THERAPY
     Dosage: 1 MG, UNK
     Route: 048
     Dates: start: 20080521, end: 20090202

REACTIONS (5)
  - Anxiety [Recovering/Resolving]
  - Confusional state [Recovered/Resolved]
  - Headache [Recovering/Resolving]
  - Intentional self-injury [Recovered/Resolved]
  - Medication error [Recovering/Resolving]
